FAERS Safety Report 7131651-1 (Version None)
Quarter: 2010Q4

REPORT INFORMATION
  Report Type: 
  Country: None (occurrence: None)
  Receive Date: 20101201
  Receipt Date: 20101119
  Transmission Date: 20110411
  Serious: Yes (Hospitalization)
  Sender: FDA-Public Use
  Company Number: US-GILEAD-2010-0033612

PATIENT
  Sex: Female
  Weight: 97.701 kg

DRUGS (18)
  1. AMBRISENTAN [Suspect]
     Indication: PULMONARY ARTERIAL HYPERTENSION
     Route: 048
     Dates: start: 20100714, end: 20101116
  2. TADALAFIL [Concomitant]
     Indication: PULMONARY ARTERIAL HYPERTENSION
     Dates: start: 20100215
  3. DILTIAZEM [Concomitant]
     Indication: PULMONARY ARTERIAL HYPERTENSION
     Dates: start: 20091013
  4. SPIRONOLACTONE [Concomitant]
     Indication: FLUID RETENTION
     Dates: start: 20100210
  5. BUMETANIDE [Concomitant]
     Indication: FLUID RETENTION
     Dates: start: 20091120
  6. ASPIRIN [Concomitant]
     Indication: CORONARY ARTERY DISEASE
     Dates: start: 20010101
  7. ROSUVASTATIN [Concomitant]
     Indication: HYPERLIPIDAEMIA
     Dates: start: 20100917
  8. OMEGA 3 FATTY ACIDS [Concomitant]
     Indication: HYPERLIPIDAEMIA
     Dates: start: 20090101
  9. MOMETASONE FUROATE [Concomitant]
     Indication: NASAL CONGESTION
     Dates: start: 20100308
  10. OMEPRAZOLE [Concomitant]
     Indication: GASTROOESOPHAGEAL REFLUX DISEASE
     Dates: start: 20010101
  11. TUMS [Concomitant]
     Indication: GASTROOESOPHAGEAL REFLUX DISEASE
     Dates: start: 20100726
  12. MELOXICAM [Concomitant]
     Indication: ARTHRITIS
     Dates: start: 20010101
  13. ACETAMINOPHEN [Concomitant]
     Indication: ARTHRITIS
     Dates: start: 19820101
  14. TRAZODONE [Concomitant]
     Dates: start: 20010101
  15. TRAMADOL HCL [Concomitant]
     Indication: ARTHRITIS
     Dates: start: 20100726
  16. LEVOTHYROXINE [Concomitant]
     Indication: HYPOTHYROIDISM
     Dates: start: 19820101
  17. POTASSIUM CHLORIDE [Concomitant]
     Indication: ELECTROLYTE SUBSTITUTION THERAPY
     Dates: start: 20091013
  18. FLAXSEED OIL [Concomitant]
     Dates: start: 20090101

REACTIONS (4)
  - DIASTOLIC DYSFUNCTION [None]
  - LEFT ATRIAL HYPERTROPHY [None]
  - RIGHT VENTRICULAR FAILURE [None]
  - TRICUSPID VALVE INCOMPETENCE [None]
